FAERS Safety Report 11078314 (Version 1)
Quarter: 2015Q2

REPORT INFORMATION
  Report Type: Spontaneous
  Country: US (occurrence: None)
  Receive Date: 20150429
  Receipt Date: 20150429
  Transmission Date: 20150821
  Serious: Yes (Hospitalization)
  Sender: FDA-Public Use
  Company Number: None

PATIENT
  Age: 65 Year
  Sex: Male
  Weight: 67 kg

DRUGS (1)
  1. LITHIUM. [Suspect]
     Active Substance: LITHIUM
     Indication: BIPOLAR I DISORDER
     Route: 048
     Dates: start: 20110404, end: 20150210

REACTIONS (3)
  - Toxicity to various agents [None]
  - Hypothyroidism [None]
  - Antipsychotic drug level above therapeutic [None]

NARRATIVE: CASE EVENT DATE: 20150319
